FAERS Safety Report 5488418-X (Version None)
Quarter: 2007Q3

REPORT INFORMATION
  Report Type: 
  Country: None (occurrence: None)
  Receive Date: 20070927
  Receipt Date: 20070718
  Transmission Date: 20080115
  Serious: No
  Sender: FDA-Public Use
  Company Number: US-CVT-070133

PATIENT
  Age: 77 Year
  Sex: Male

DRUGS (23)
  1. RANEXA [Suspect]
     Indication: ANGINA PECTORIS
     Dosage: 500 MG, BID, ORAL
     Route: 048
     Dates: start: 20070601
  2. ALLOPURINOL [Concomitant]
  3. CARDURA /00639301/ (DOXAZOSIN) [Concomitant]
  4. PROTONIX /01263201/ (PANTOPRAZOLE) [Concomitant]
  5. BENICAR [Concomitant]
  6. LEXAPRO [Concomitant]
  7. LIPITOR [Concomitant]
  8. COUMADIN [Concomitant]
  9. DIGOXIN /00017701/ (DIGOXIN) [Concomitant]
  10. ADVAIR DISKUS 100/50 [Concomitant]
  11. COREG [Concomitant]
  12. TORSEMIDE [Concomitant]
  13. HYDRALAZINE HCL [Concomitant]
  14. OMACOR [Concomitant]
  15. FOLIC ACID [Concomitant]
  16. CENTRUM SILVER (ASCORBIC ACID, CALCIUM, MINERALS NOS, RETINOL, TOCOPHE [Concomitant]
  17. VELETAN (DICLOFENAC SODIUM) [Concomitant]
  18. AZOPT [Concomitant]
  19. ALPHAGAN [Concomitant]
  20. ERYTHROMYCIN/00020901/ (ERYTHROMYCIN) [Concomitant]
  21. GENTEAL (HYPROMELLOSE) [Concomitant]
  22. AVODART [Concomitant]
  23. MINOXIDIL [Concomitant]

REACTIONS (3)
  - BLOOD CREATININE INCREASED [None]
  - GAIT DISTURBANCE [None]
  - TREMOR [None]
